FAERS Safety Report 11993215 (Version 1)
Quarter: 2016Q1

REPORT INFORMATION
  Report Type: Spontaneous
  Country: US (occurrence: None)
  Receive Date: 20160202
  Receipt Date: 20160202
  Transmission Date: 20160526
  Serious: No
  Sender: FDA-Public Use
  Company Number: None

PATIENT
  Sex: Female

DRUGS (1)
  1. TECFIDERA [Suspect]
     Active Substance: DIMETHYL FUMARATE
     Indication: MULTIPLE SCLEROSIS
     Dosage: 120MG  TAKE 1 CAPSULE EVERY MORNING BY MOUTH
     Route: 048
     Dates: start: 20151030, end: 20160108

REACTIONS (6)
  - Vomiting [None]
  - Pyrexia [None]
  - Hyperhidrosis [None]
  - Diarrhoea [None]
  - Dehydration [None]
  - Flushing [None]
